FAERS Safety Report 8356984-2 (Version None)
Quarter: 2012Q2

REPORT INFORMATION
  Report Type: 
  Country: None (occurrence: None)
  Receive Date: 20120514
  Receipt Date: 20120509
  Transmission Date: 20120825
  Serious: Yes (Other)
  Sender: FDA-Public Use
  Company Number: CO-PFIZER INC-2012114460

PATIENT
  Age: 15 Year
  Sex: Male

DRUGS (6)
  1. CALCITRIOL [Concomitant]
     Dosage: UNK
  2. FOLIC ACID [Concomitant]
  3. ENALAPRIL [Concomitant]
     Indication: RENAL IMPAIRMENT
     Dosage: 5 MG, UNK
     Route: 048
  4. CALCIUM [Concomitant]
  5. SODIUM BICARBONATE [Concomitant]
     Indication: RENAL IMPAIRMENT
     Dosage: UNK
  6. GENOTROPIN [Suspect]
     Indication: RENAL IMPAIRMENT
     Dosage: UNK
     Dates: start: 20100501, end: 20110501

REACTIONS (3)
  - KNEE DEFORMITY [None]
  - WEIGHT DECREASED [None]
  - FOOT DEFORMITY [None]
